FAERS Safety Report 16210346 (Version 1)
Quarter: 2019Q2

REPORT INFORMATION
  Report Type: Spontaneous
  Country: CN (occurrence: CN)
  Receive Date: 20190418
  Receipt Date: 20190418
  Transmission Date: 20190711
  Serious: Yes (Other)
  Sender: FDA-Public Use
  Company Number: CN-ROCHE-2304110

PATIENT

DRUGS (6)
  1. EXEMESTANE. [Concomitant]
     Active Substance: EXEMESTANE
  2. LAPATINIB [Concomitant]
     Active Substance: LAPATINIB
     Route: 065
     Dates: start: 2018
  3. CAPECITABINE. [Suspect]
     Active Substance: CAPECITABINE
     Indication: BREAST CANCER
     Route: 048
     Dates: start: 2017
  4. PYROTINIB [Concomitant]
     Active Substance: PYROTINIB
     Route: 065
     Dates: start: 2019
  5. LETROZOLE. [Concomitant]
     Active Substance: LETROZOLE
  6. LAPATINIB [Concomitant]
     Active Substance: LAPATINIB
     Route: 048
     Dates: start: 20180526

REACTIONS (7)
  - Pneumonitis [Unknown]
  - Uterine leiomyoma [Unknown]
  - Lacunar infarction [Unknown]
  - Leiomyoma [Unknown]
  - Pericardial effusion [Unknown]
  - Diarrhoea [Unknown]
  - Muscular weakness [Unknown]

NARRATIVE: CASE EVENT DATE: 2018
